FAERS Safety Report 25131636 (Version 3)
Quarter: 2025Q4

REPORT INFORMATION
  Report Type: Report from Study
  Country: CA (occurrence: CA)
  Receive Date: 20250327
  Receipt Date: 20251009
  Transmission Date: 20260118
  Serious: Yes (Death, Hospitalization, Other)
  Sender: PFIZER
  Company Number: CA-PFIZER INC-202500066003

PATIENT
  Age: 72 Year
  Sex: Female
  Weight: 32 kg

DRUGS (2)
  1. RITUXIMAB [Suspect]
     Active Substance: RITUXIMAB
     Indication: Rheumatoid arthritis
     Dosage: 1000 MG
     Route: 042
  2. RITUXIMAB [Suspect]
     Active Substance: RITUXIMAB
     Indication: Rheumatoid arthritis
     Dosage: 1000 MG
     Route: 042

REACTIONS (13)
  - Illness [Fatal]
  - Viral infection [Fatal]
  - Blood pressure abnormal [Fatal]
  - Chronic obstructive pulmonary disease [Fatal]
  - Death [Fatal]
  - Dizziness [Fatal]
  - General physical health deterioration [Fatal]
  - Headache [Fatal]
  - Hyperhidrosis [Fatal]
  - Infection [Fatal]
  - Lower respiratory tract infection [Fatal]
  - Vein collapse [Fatal]
  - Product dose omission issue [Fatal]
